FAERS Safety Report 6995922-1 (Version None)
Quarter: 2010Q3

REPORT INFORMATION
  Report Type: 
  Country: None (occurrence: None)
  Receive Date: 20100918
  Receipt Date: 20081223
  Transmission Date: 20110219
  Serious: No
  Sender: FDA-Public Use
  Company Number: US-WYE-H06142008

PATIENT
  Sex: Female
  Weight: 63.11 kg

DRUGS (5)
  1. PREMPRO [Suspect]
     Indication: MENOPAUSAL SYMPTOMS
     Dosage: 0.3 MG/1.5 MG DAILY
     Route: 048
     Dates: start: 20080921
  2. AMBIEN [Concomitant]
  3. TAGAMET [Concomitant]
  4. PREMARIN [Concomitant]
     Indication: VULVOVAGINAL DRYNESS
     Route: 067
     Dates: start: 20080901
  5. CYMBALTA [Concomitant]
     Indication: DEPRESSION

REACTIONS (1)
  - FEELING JITTERY [None]
